FAERS Safety Report 25747568 (Version 2)
Quarter: 2025Q3

REPORT INFORMATION
  Report Type: Spontaneous
  Country: US (occurrence: US)
  Receive Date: 20250901
  Receipt Date: 20250909
  Transmission Date: 20251020
  Serious: Yes (Other)
  Sender: ABBVIE
  Company Number: US-ABBVIE-6433022

PATIENT
  Sex: Female

DRUGS (6)
  1. RESTASIS [Suspect]
     Active Substance: CYCLOSPORINE
     Indication: Dry eye
     Dosage: 1 DROP IN EACH EYE, ROA: OPHTHALMIC
     Route: 065
     Dates: start: 2018
  2. REFRESH CELLUVISC [Suspect]
     Active Substance: CARBOXYMETHYLCELLULOSE SODIUM
     Indication: Dry eye
     Route: 065
     Dates: start: 20250825, end: 20250825
  3. REFRESH TEARS [Suspect]
     Active Substance: CARBOXYMETHYLCELLULOSE SODIUM
     Indication: Dry eye
     Dosage: 1 SINGLE VIAL WAS SHARED IN EACH EYE, ROA: OPHTHALMIC
     Route: 065
     Dates: end: 20250825
  4. REFRESH TEARS [Suspect]
     Active Substance: CARBOXYMETHYLCELLULOSE SODIUM
     Indication: Dry eye
     Dosage: 1 SINGLE VIAL WAS SHARED IN EACH EYE, ROA: OPHTHALMIC
     Route: 065
     Dates: start: 2015
  5. REFRESH PLUS [Suspect]
     Active Substance: CARBOXYMETHYLCELLULOSE SODIUM
     Indication: Dry eye
     Dosage: 1 SINGLE VIAL WAS SHARED IN EACH EYE, ROA: OPHTHALMIC
     Route: 065
  6. REFRESH PLUS [Suspect]
     Active Substance: CARBOXYMETHYLCELLULOSE SODIUM
     Indication: Dry eye
     Dosage: 1 SINGLE VIAL WAS SHARED IN EACH EYE, ROA: OPHTHALMIC
     Route: 065

REACTIONS (4)
  - Cataract [Recovering/Resolving]
  - Abnormal sensation in eye [Recovering/Resolving]
  - Cataract [Not Recovered/Not Resolved]
  - Sjogren^s syndrome [Unknown]

NARRATIVE: CASE EVENT DATE: 20190101
